FAERS Safety Report 7678311-6 (Version None)
Quarter: 2011Q3

REPORT INFORMATION
  Report Type: 
  Country: None (occurrence: None)
  Receive Date: 20110811
  Receipt Date: 20110802
  Transmission Date: 20111222
  Serious: Yes (Disabling)
  Sender: FDA-Public Use
  Company Number: US-PERRIGO-11US004818

PATIENT
  Sex: Female
  Weight: 93.878 kg

DRUGS (3)
  1. NICOTINE [Suspect]
     Indication: SMOKING CESSATION THERAPY
     Dosage: 4 MG, TWICE
     Route: 002
     Dates: start: 20110604, end: 20110604
  2. DEPO-PROVERA [Concomitant]
     Indication: CONTRACEPTION
     Dosage: UNK, EVERY 3 MONTHS
     Route: 030
  3. IBUPROFEN [Concomitant]
     Indication: PAIN
     Dosage: 800 MG, TID, PRN
     Route: 048

REACTIONS (15)
  - ORAL DISCOMFORT [None]
  - BURNING SENSATION [None]
  - HYPERSENSITIVITY [None]
  - CONJUNCTIVAL HYPERAEMIA [None]
  - PARAESTHESIA ORAL [None]
  - OEDEMA MOUTH [None]
  - ORAL MUCOSAL EXFOLIATION [None]
  - PRESBYOPIA [None]
  - HYPERHIDROSIS [None]
  - EYE SWELLING [None]
  - LACRIMATION INCREASED [None]
  - EYE IRRITATION [None]
  - DYSPHONIA [None]
  - SKIN DISCOLOURATION [None]
  - TONGUE DISORDER [None]
